FAERS Safety Report 20840960 (Version 1)
Quarter: 2022Q2

REPORT INFORMATION
  Report Type: Spontaneous
  Country: US (occurrence: US)
  Receive Date: 20220517
  Receipt Date: 20220517
  Transmission Date: 20220720
  Serious: No
  Sender: FDA-Public Use
  Company Number: US-PFIZER INC-202200106558

PATIENT
  Age: 74 Year
  Sex: Female
  Weight: 67.59 kg

DRUGS (1)
  1. PRISTIQ EXTENDED-RELEASE [Suspect]
     Active Substance: DESVENLAFAXINE SUCCINATE
     Indication: Anxiety
     Dosage: 100 MG, 1X/DAY
     Route: 048

REACTIONS (4)
  - Memory impairment [Unknown]
  - Weight decreased [Unknown]
  - Nightmare [Unknown]
  - Off label use [Unknown]
